FAERS Safety Report 9168987 (Version 1)
Quarter: 2013Q1

REPORT INFORMATION
  Report Type: Spontaneous
  Country: US (occurrence: None)
  Receive Date: 20130314
  Receipt Date: 20130314
  Transmission Date: 20140127
  Serious: Yes (Hospitalization)
  Sender: FDA-Public Use
  Company Number: None

PATIENT
  Age: 82 Year
  Sex: Male
  Weight: 92.2 kg

DRUGS (1)
  1. WARFARIN [Suspect]
     Indication: ATRIAL FIBRILLATION
     Dosage: 7.5 MG   EVERY DAY   PO?01/19/2012  THRU  02/07/2013
     Route: 048
     Dates: start: 20121019, end: 20130207

REACTIONS (1)
  - Gastric haemorrhage [None]
